FAERS Safety Report 12113450 (Version 1)
Quarter: 2016Q1

REPORT INFORMATION
  Report Type: Spontaneous
  Country: US (occurrence: US)
  Receive Date: 20160225
  Receipt Date: 20160225
  Transmission Date: 20160526
  Serious: Yes (Other)
  Sender: FDA-Public Use
  Company Number: US-ROCHE-1716592

PATIENT
  Age: 65 Year
  Sex: Female

DRUGS (7)
  1. CELLCEPT [Suspect]
     Active Substance: MYCOPHENOLATE MOFETIL\MYCOPHENOLATE MOFETIL HYDROCHLORIDE
     Indication: LIVER TRANSPLANT
     Dosage: 2 TABS BID
     Route: 048
     Dates: start: 20151113
  2. LEVEMIR [Concomitant]
     Active Substance: INSULIN DETEMIR
     Route: 065
     Dates: start: 20160224
  3. METOPROLOL TARTRATE. [Concomitant]
     Active Substance: METOPROLOL TARTRATE
     Route: 048
     Dates: start: 20151019
  4. LEVOTHYROXINE. [Concomitant]
     Active Substance: LEVOTHYROXINE
     Route: 048
     Dates: start: 20151019
  5. AMLODIPINE [Concomitant]
     Active Substance: AMLODIPINE BESYLATE
     Route: 048
     Dates: start: 20151019
  6. DIOVAN [Concomitant]
     Active Substance: VALSARTAN
     Route: 048
     Dates: start: 20151019
  7. RAPAMUNE [Concomitant]
     Active Substance: SIROLIMUS

REACTIONS (3)
  - Hyperhidrosis [Unknown]
  - Dizziness [Unknown]
  - Blood glucose decreased [Unknown]

NARRATIVE: CASE EVENT DATE: 20160224
